FAERS Safety Report 10070752 (Version 1)
Quarter: 2014Q2

REPORT INFORMATION
  Report Type: Spontaneous
  Country: US (occurrence: US)
  Receive Date: 20140410
  Receipt Date: 20140410
  Transmission Date: 20141212
  Serious: No
  Sender: FDA-Public Use
  Company Number: US-PFIZER INC-2014060967

PATIENT
  Sex: Female

DRUGS (2)
  1. TIKOSYN [Suspect]
     Indication: ATRIAL FLUTTER
     Dosage: 125 UG, UNK
     Dates: start: 201402, end: 201402
  2. XARELTO [Suspect]
     Indication: ATRIAL FLUTTER
     Dosage: UNK

REACTIONS (5)
  - Back pain [Unknown]
  - Fatigue [Unknown]
  - Constipation [Unknown]
  - Rash [Unknown]
  - Malaise [Unknown]
